FAERS Safety Report 15488176 (Version 3)
Quarter: 2019Q2

REPORT INFORMATION
  Report Type: Spontaneous
  Country: IN (occurrence: IN)
  Receive Date: 20181011
  Receipt Date: 20190423
  Transmission Date: 20190711
  Serious: Yes (Death, Hospitalization, Other)
  Sender: FDA-Public Use
  Company Number: IN-PFIZER INC-2018053375

PATIENT
  Age: 72 Year
  Sex: Male
  Weight: 79 kg

DRUGS (3)
  1. INLYTA [Suspect]
     Active Substance: AXITINIB
     Indication: METASTATIC RENAL CELL CARCINOMA
     Dosage: 5 MG, 2X/DAY
     Route: 048
     Dates: start: 20171109
  2. INLYTA [Suspect]
     Active Substance: AXITINIB
     Dosage: 10 MG, 2X/DAY
     Route: 048
  3. NEOGADINE [Concomitant]
     Dosage: 10 ML, 3X/DAY (ELIXIR)

REACTIONS (10)
  - Pneumothorax [Unknown]
  - Myocardial infarction [Unknown]
  - Renal failure [Unknown]
  - Musculoskeletal stiffness [Unknown]
  - Musculoskeletal pain [Unknown]
  - Cerebral disorder [Unknown]
  - Alanine aminotransferase increased [Unknown]
  - Death [Fatal]
  - Oedema peripheral [Unknown]
  - Blood creatinine increased [Unknown]

NARRATIVE: CASE EVENT DATE: 20180116
